FAERS Safety Report 4929374-X (Version None)
Quarter: 2006Q1

REPORT INFORMATION
  Report Type: 
  Country: None (occurrence: None)
  Receive Date: 20060224
  Receipt Date: 20060215
  Transmission Date: 20060701
  Serious: Yes (Other)
  Sender: FDA-Public Use
  Company Number: 2006023355

PATIENT

DRUGS (4)
  1. ALDACTONE [Suspect]
     Indication: ASCITES
     Dosage: ORAL
     Route: 048
  2. LASIX [Concomitant]
  3. ANTIBIOTICS [Concomitant]
  4. ANTIINFLAMMATORY/ANTIRHEUMATIC NON-STEROIDS [Concomitant]

REACTIONS (1)
  - PANCYTOPENIA [None]
